FAERS Safety Report 15936508 (Version 1)
Quarter: 2019Q1

REPORT INFORMATION
  Report Type: Spontaneous
  Country: US (occurrence: US)
  Receive Date: 20190208
  Receipt Date: 20190208
  Transmission Date: 20190417
  Serious: No
  Sender: FDA-Public Use
  Company Number: US-AMGEN INC.-USASP2019017439

PATIENT
  Sex: Female

DRUGS (1)
  1. AIMOVIG [Suspect]
     Active Substance: ERENUMAB-AOOE
     Indication: MIGRAINE
     Dosage: UNK
     Route: 065
     Dates: start: 2018

REACTIONS (13)
  - Dizziness [Unknown]
  - Thinking abnormal [Unknown]
  - Arthralgia [Unknown]
  - Neck pain [Unknown]
  - Vertigo [Unknown]
  - Alopecia [Unknown]
  - Constipation [Unknown]
  - Anxiety [Unknown]
  - Palpitations [Unknown]
  - Insomnia [Unknown]
  - Nausea [Unknown]
  - Influenza like illness [Unknown]
  - Weight increased [Unknown]

NARRATIVE: CASE EVENT DATE: 2018
